FAERS Safety Report 7680381-6 (Version None)
Quarter: 2011Q3

REPORT INFORMATION
  Report Type: 
  Country: None (occurrence: None)
  Receive Date: 20110812
  Receipt Date: 20110812
  Transmission Date: 20111222
  Serious: Yes (Other)
  Sender: FDA-Public Use
  Company Number: DE-GLAXOSMITHKLINE-D0071926A

PATIENT
  Sex: Male

DRUGS (5)
  1. TROBALT [Suspect]
     Indication: EPILEPSY
     Dosage: 150MG THREE TIMES PER DAY
     Route: 048
  2. CLOBAZAM [Concomitant]
     Indication: EPILEPSY
     Dosage: 10MG TWICE PER DAY
     Route: 048
  3. CLONAZEPAM [Concomitant]
     Indication: EPILEPSY
     Dosage: 1MG TWICE PER DAY
     Route: 065
  4. PHENOBARBITAL TAB [Concomitant]
     Indication: EPILEPSY
     Dosage: 25MG TWICE PER DAY
     Route: 065
  5. ZONEGRAN [Concomitant]
     Indication: EPILEPSY
     Dosage: 150MG TWICE PER DAY
     Route: 048

REACTIONS (6)
  - AMIMIA [None]
  - MUSCLE RIGIDITY [None]
  - POSTURE ABNORMAL [None]
  - PARKINSONISM [None]
  - PARKINSONIAN GAIT [None]
  - DRUG INEFFECTIVE [None]
